FAERS Safety Report 13262093 (Version 1)
Quarter: 2017Q1

REPORT INFORMATION
  Report Type: Spontaneous
  Country: US (occurrence: US)
  Receive Date: 20170222
  Receipt Date: 20170222
  Transmission Date: 20170428
  Serious: No
  Sender: FDA-Public Use
  Company Number: US-AMNEAL PHARMACEUTICALS-2017AMN00001

PATIENT
  Sex: Female
  Weight: 79.37 kg

DRUGS (7)
  1. GENERIC TOPROL [Concomitant]
  2. GENERIC LIPITOR [Concomitant]
     Active Substance: ATORVASTATIN CALCIUM
  3. ZETIA [Concomitant]
     Active Substance: EZETIMIBE
  4. METFORMIN HYDROCHLORIDE. [Suspect]
     Active Substance: METFORMIN HYDROCHLORIDE
     Dosage: 500 MG, 4X/DAY (2 AT BREAKFAST AND 2 AT DINNER)
  5. METFORMIN HYDROCHLORIDE. [Suspect]
     Active Substance: METFORMIN HYDROCHLORIDE
     Indication: DIABETES MELLITUS
     Dosage: 500 MG, 3X/DAY
     Route: 048
     Dates: start: 2014
  6. ASPIRIN. [Concomitant]
     Active Substance: ASPIRIN
     Dosage: 81 MG, UNK
  7. LOSARTAN. [Concomitant]
     Active Substance: LOSARTAN

REACTIONS (3)
  - Flatulence [Not Recovered/Not Resolved]
  - Medication residue present [Not Recovered/Not Resolved]
  - Diarrhoea [Not Recovered/Not Resolved]
